FAERS Safety Report 16860177 (Version 1)
Quarter: 2019Q3

REPORT INFORMATION
  Report Type: Spontaneous
  Country: US (occurrence: US)
  Receive Date: 20190927
  Receipt Date: 20190927
  Transmission Date: 20191005
  Serious: Yes (Other)
  Sender: FDA-Public Use
  Company Number: None

PATIENT
  Age: 57 Year
  Sex: Male
  Weight: 95.5 kg

DRUGS (7)
  1. INSULIN [Concomitant]
     Active Substance: INSULIN NOS
     Dates: start: 20190924, end: 20190924
  2. EPINEPHRINE. [Concomitant]
     Active Substance: EPINEPHRINE
     Dates: start: 20190924, end: 20190924
  3. HEPARIN [Suspect]
     Active Substance: HEPARIN SODIUM
     Indication: ANTICOAGULANT THERAPY
     Route: 040
     Dates: start: 20190924, end: 20190924
  4. FENTANYL. [Concomitant]
     Active Substance: FENTANYL
     Dates: start: 20190924, end: 20190924
  5. NS0.9% [Concomitant]
     Dates: start: 20190924, end: 20190924
  6. NOREPINEPHRINE. [Concomitant]
     Active Substance: NOREPINEPHRINE
     Dates: start: 20190924, end: 20190924
  7. LACTATED RINGERS SOLUTION [Concomitant]
     Active Substance: CALCIUM CHLORIDE\POTASSIUM CHLORIDE\SODIUM CHLORIDE\SODIUM LACTATE
     Dates: start: 20190924, end: 20190924

REACTIONS (3)
  - Prothrombin level decreased [None]
  - Heparin resistance [None]
  - Prescribed overdose [None]

NARRATIVE: CASE EVENT DATE: 20190924
